FAERS Safety Report 18936792 (Version 1)
Quarter: 2021Q1

REPORT INFORMATION
  Report Type: Spontaneous
  Country: US (occurrence: US)
  Receive Date: 20210225
  Receipt Date: 20210225
  Transmission Date: 20210420
  Serious: Yes (Hospitalization)
  Sender: FDA-Public Use
  Company Number: US-VERO BIOTECH-2107316

PATIENT
  Age: 0 Day
  Sex: Female

DRUGS (2)
  1. GENOSYL [Suspect]
     Active Substance: NITRIC OXIDE
     Route: 055
     Dates: start: 20210213
  2. GENOSYL [Suspect]
     Active Substance: NITRIC OXIDE

REACTIONS (3)
  - PO2 decreased [Not Recovered/Not Resolved]
  - Cardio-respiratory arrest neonatal [Recovered/Resolved]
  - Internal haemorrhage [Unknown]

NARRATIVE: CASE EVENT DATE: 20210213
